FAERS Safety Report 6962732-0 (Version None)
Quarter: 2010Q3

REPORT INFORMATION
  Report Type: 
  Country: None (occurrence: None)
  Receive Date: 20100823
  Receipt Date: 20100625
  Transmission Date: 20110219
  Serious: Yes (Hospitalization)
  Sender: FDA-Public Use
  Company Number: 017125

PATIENT
  Sex: Female
  Weight: 53 kg

DRUGS (8)
  1. CIMZIA [Suspect]
     Dosage: (400 MG 1X/MONTH SUBCUTANEOUS)
     Route: 058
     Dates: start: 20091001, end: 20100501
  2. CYMBALTA [Concomitant]
  3. IRON [Concomitant]
  4. POTASSIUM [Concomitant]
  5. ACIPHEX [Concomitant]
  6. FOLIC ACID [Concomitant]
  7. OXYCODONE HCL [Concomitant]
  8. LORAZEPAM [Concomitant]

REACTIONS (1)
  - CROHN'S DISEASE [None]
